FAERS Safety Report 5128908-2 (Version None)
Quarter: 2006Q4

REPORT INFORMATION
  Report Type: 
  Country: None (occurrence: None)
  Receive Date: 20061011
  Receipt Date: 20060929
  Transmission Date: 20070319
  Serious: Yes (Hospitalization, Other)
  Sender: FDA-Public Use
  Company Number: HQ3957826AUG2002

PATIENT
  Age: 55 Year
  Sex: Male
  Weight: 102.3 kg

DRUGS (4)
  1. MYLOTARG [Suspect]
     Indication: ACUTE MYELOID LEUKAEMIA
     Dosage: 20.7 MG 1X PER 1 DAY, INTRAVENOUS
     Route: 042
     Dates: start: 20020401, end: 20020401
  2. KLOR-CON [Concomitant]
  3. LEVAQUIN [Concomitant]
  4. DIFLUCAN [Concomitant]

REACTIONS (5)
  - DYSURIA [None]
  - FEBRILE NEUTROPENIA [None]
  - HAEMATURIA [None]
  - HAEMOGLOBIN DECREASED [None]
  - THROMBOCYTOPENIA [None]
